FAERS Safety Report 6895986-X (Version None)
Quarter: 2010Q3

REPORT INFORMATION
  Report Type: 
  Country: None (occurrence: None)
  Receive Date: 20100728
  Receipt Date: 20100719
  Transmission Date: 20110219
  Serious: Yes (Hospitalization)
  Sender: FDA-Public Use
  Company Number: TPA2010A04138

PATIENT
  Age: 64 Year
  Sex: Female
  Weight: 74.8435 kg

DRUGS (9)
  1. ACTOS [Suspect]
     Indication: TYPE 2 DIABETES MELLITUS
     Dosage: 15 MG, 1 IN 1 D, PER ORAL
     Route: 048
     Dates: start: 20090101
  2. FLUOXETINE [Concomitant]
  3. CRESTOR [Concomitant]
  4. ALLOPURINOL [Concomitant]
  5. GEMFIBROZIL [Concomitant]
  6. IBUPROFEN [Concomitant]
  7. FUROSEMIDE [Concomitant]
  8. COZAAR [Concomitant]
  9. LANTUS [Concomitant]

REACTIONS (6)
  - ABDOMINAL PAIN UPPER [None]
  - BLADDER NEOPLASM SURGERY [None]
  - DEVICE OCCLUSION [None]
  - DYSURIA [None]
  - INCISION SITE HAEMORRHAGE [None]
  - VAGINAL HAEMORRHAGE [None]
